FAERS Safety Report 11212223 (Version 1)
Quarter: 2015Q2

REPORT INFORMATION
  Report Type: Spontaneous
  Country: GB (occurrence: GB)
  Receive Date: 20150623
  Receipt Date: 20150623
  Transmission Date: 20150821
  Serious: Yes (Other)
  Sender: FDA-Public Use
  Company Number: GB-TEVA-570465ACC

PATIENT
  Age: 59 Year
  Sex: Female
  Weight: 76.2 kg

DRUGS (6)
  1. FLUCLOXACILLIN [Concomitant]
     Active Substance: FLUCLOXACILLIN
  2. PREDNISOLONE. [Concomitant]
     Active Substance: PREDNISOLONE
  3. VENTOLIN [Concomitant]
     Active Substance: ALBUTEROL SULFATE
  4. AMLODIPINE [Suspect]
     Active Substance: AMLODIPINE BESYLATE
     Indication: HYPERTENSION
     Route: 048
     Dates: start: 20150523, end: 20150526
  5. FOSTAIR [Concomitant]
     Active Substance: BECLOMETHASONE\FORMOTEROL
  6. BENDROFLUMETHIAZIDE [Concomitant]
     Active Substance: BENDROFLUMETHIAZIDE

REACTIONS (6)
  - Pruritus [Recovering/Resolving]
  - Joint swelling [Recovering/Resolving]
  - Myalgia [Recovering/Resolving]
  - Dyspnoea [Recovering/Resolving]
  - Insomnia [Recovering/Resolving]
  - Peripheral swelling [Recovering/Resolving]

NARRATIVE: CASE EVENT DATE: 20150523
